FAERS Safety Report 7439533-2 (Version None)
Quarter: 2011Q2

REPORT INFORMATION
  Report Type: 
  Country: None (occurrence: None)
  Receive Date: 20110427
  Receipt Date: 20110419
  Transmission Date: 20111010
  Serious: Yes (Other)
  Sender: FDA-Public Use
  Company Number: GB-BRISTOL-MYERS SQUIBB COMPANY-15642168

PATIENT
  Age: 29 Year
  Sex: Male
  Weight: 117 kg

DRUGS (6)
  1. CLOZAPINE [Concomitant]
     Indication: PSYCHOTIC DISORDER
     Route: 048
  2. PROCYCLIDINE HYDROCHLORIDE 2MG TAB [Concomitant]
     Route: 048
  3. MULTI-VITAMINS [Concomitant]
     Indication: VITAMIN SUPPLEMENTATION
     Dosage: 1 DF = 1 TABS
     Route: 048
  4. MULTI-VITAMINS [Concomitant]
     Indication: MINERAL SUPPLEMENTATION
     Dosage: 1 DF = 1 TABS
     Route: 048
  5. CLOZAPINE [Concomitant]
     Indication: SCHIZOPHRENIA
     Route: 048
  6. ABILIFY [Suspect]
     Indication: SCHIZOPHRENIA
     Dosage: 02/03DEC2010 TO 05/06DEC2010
     Route: 048
     Dates: start: 20101201, end: 20101201

REACTIONS (1)
  - PSYCHOTIC DISORDER [None]
